FAERS Safety Report 4442947-6 (Version None)
Quarter: 2004Q3

REPORT INFORMATION
  Report Type: 
  Country: None (occurrence: None)
  Receive Date: 20040907
  Receipt Date: 20040907
  Transmission Date: 20050211
  Serious: Yes (Hospitalization, Disabling)
  Sender: FDA-Public Use
  Company Number: None

PATIENT
  Age: 55 Year
  Sex: Male
  Weight: 81.6475 kg

DRUGS (2)
  1. CHLORPROMAZINE [Suspect]
     Indication: HICCUPS
     Dosage: 25 MG   EVERY 6-8   ORAL
     Route: 048
     Dates: start: 20030103, end: 20030110
  2. CHLORPROMAZINE [Suspect]
     Indication: NAUSEA
     Dosage: 25 MG   EVERY 6-8   ORAL
     Route: 048
     Dates: start: 20030103, end: 20030110

REACTIONS (13)
  - ABASIA [None]
  - AMNESIA [None]
  - ATAXIA [None]
  - CAPILLARY DISORDER [None]
  - CHOKING [None]
  - CONFUSIONAL STATE [None]
  - DROOLING [None]
  - DYSSTASIA [None]
  - DYSURIA [None]
  - MUSCULAR WEAKNESS [None]
  - OEDEMA PERIPHERAL [None]
  - SEXUAL DYSFUNCTION [None]
  - TREMOR [None]
